FAERS Safety Report 19486139 (Version 3)
Quarter: 2021Q3

REPORT INFORMATION
  Report Type: Spontaneous
  Country: US (occurrence: US)
  Receive Date: 20210702
  Receipt Date: 20210728
  Transmission Date: 20211014
  Serious: No
  Sender: FDA-Public Use
  Company Number: US-SA-2021SA212059

PATIENT
  Age: 71 Year
  Sex: Female

DRUGS (1)
  1. LANTUS SOLOSTAR [Suspect]
     Active Substance: INSULIN GLARGINE
     Indication: TYPE 2 DIABETES MELLITUS
     Dosage: 55 IU, QD AT NIGHT
     Route: 065

REACTIONS (4)
  - Multiple use of single-use product [Unknown]
  - Device operational issue [Unknown]
  - Drug dose omission by device [Unknown]
  - Blood glucose increased [Unknown]
